FAERS Safety Report 9728231 (Version 1)
Quarter: 2013Q4

REPORT INFORMATION
  Report Type: Spontaneous
  Country: US (occurrence: US)
  Receive Date: 20131204
  Receipt Date: 20131204
  Transmission Date: 20140711
  Serious: No
  Sender: FDA-Public Use
  Company Number: US-JNJFOC-20131115949

PATIENT
  Age: 78 Year
  Sex: Female
  Weight: 56.25 kg

DRUGS (2)
  1. SANDOZ FENTANYL MATRIX TRANSDERMAL SYSTEM [Suspect]
     Indication: PAIN
     Route: 062
     Dates: start: 201311, end: 201311
  2. ATENOLOL [Concomitant]
     Indication: HYPERTENSION
     Route: 065

REACTIONS (5)
  - Inappropriate schedule of drug administration [Unknown]
  - Drug dose omission [Unknown]
  - Asthenia [Unknown]
  - Influenza [Not Recovered/Not Resolved]
  - Malaise [Not Recovered/Not Resolved]
